FAERS Safety Report 5409973-1 (Version None)
Quarter: 2007Q3

REPORT INFORMATION
  Report Type: 
  Country: None (occurrence: None)
  Receive Date: 20070713
  Receipt Date: 20070427
  Transmission Date: 20080115
  Serious: No
  Sender: FDA-Public Use
  Company Number: 2007SP001540

PATIENT
  Age: 45 Year
  Sex: Male

DRUGS (5)
  1. LUNESTA [Suspect]
     Indication: INSOMNIA
     Dosage: 3 MG;HS;ORAL, 6 MG;HS;ORAL
     Route: 048
     Dates: start: 20061001, end: 20070422
  2. LUNESTA [Suspect]
     Indication: INSOMNIA
     Dosage: 3 MG;HS;ORAL, 6 MG;HS;ORAL
     Route: 048
     Dates: start: 20070423
  3. ZANAFLEX [Concomitant]
  4. DURAGESIC-100 [Concomitant]
  5. PERCOCET [Concomitant]

REACTIONS (1)
  - INSOMNIA [None]
